FAERS Safety Report 9458934 (Version 2)
Quarter: 2013Q4

REPORT INFORMATION
  Report Type: Spontaneous
  Country: US (occurrence: US)
  Receive Date: 20130814
  Receipt Date: 20131101
  Transmission Date: 20140711
  Serious: Yes (Hospitalization)
  Sender: FDA-Public Use
  Company Number: US-BAYER-2013-097881

PATIENT
  Age: 56 Year
  Sex: Female
  Weight: 84.35 kg

DRUGS (1)
  1. CLIMARA [Suspect]
     Indication: HOT FLUSH
     Dosage: UNK
     Route: 062
     Dates: start: 1995, end: 20130719

REACTIONS (1)
  - Thrombosis [Recovered/Resolved]
